FAERS Safety Report 9601364 (Version 2)
Quarter: 2013Q4

REPORT INFORMATION
  Report Type: Spontaneous
  Country: TR (occurrence: TR)
  Receive Date: 20131007
  Receipt Date: 20131007
  Transmission Date: 20140711
  Serious: Yes (Hospitalization, Other)
  Sender: FDA-Public Use
  Company Number: TR-AMGEN-TURSP2013021493

PATIENT
  Age: 49 Year
  Sex: Male

DRUGS (1)
  1. ENBREL [Suspect]
     Indication: ANKYLOSING SPONDYLITIS
     Dosage: 50 MG, WEEKLY
     Route: 058
     Dates: start: 20110601

REACTIONS (5)
  - Confusional state [Not Recovered/Not Resolved]
  - Femoral neck fracture [Unknown]
  - Road traffic accident [Recovered/Resolved]
  - Inappropriate schedule of drug administration [Recovered/Resolved]
  - Back pain [Recovering/Resolving]
